FAERS Safety Report 15744844 (Version 3)
Quarter: 2022Q1

REPORT INFORMATION
  Report Type: Spontaneous
  Country: GB (occurrence: GB)
  Receive Date: 20181220
  Receipt Date: 20220311
  Transmission Date: 20220423
  Serious: Yes (Death, Life-Threatening, Hospitalization, Disabling, Other)
  Sender: FDA-Public Use
  Company Number: GB-EMA-DD-20181204-JAIN_H1-093535

PATIENT
  Age: 76 Year
  Sex: Male
  Weight: 69 kg

DRUGS (36)
  1. CLARITHROMYCIN [Suspect]
     Active Substance: CLARITHROMYCIN
     Indication: Lower respiratory tract infection
     Dosage: 1000 MILLIGRAM DAILY;
     Route: 042
     Dates: start: 20180127, end: 20180131
  2. TACROLIMUS [Interacting]
     Active Substance: TACROLIMUS
     Indication: Renal transplant
     Dosage: 3 MILLIGRAM DAILY;
     Route: 048
     Dates: start: 20180127, end: 20180131
  3. CEFUROXIME [Interacting]
     Active Substance: CEFUROXIME
     Indication: Product used for unknown indication
     Dosage: UNK
     Route: 065
     Dates: start: 20180131
  4. ENVARSUS XR [Suspect]
     Active Substance: TACROLIMUS
     Indication: Prophylaxis against transplant rejection
     Dosage: ADDITIONAL INFO: BRAND NAME UNKNOWN. DRUG TO BE VERIFIED FOR BRAND
     Route: 065
  5. BISOPROLOL [Interacting]
     Active Substance: BISOPROLOL
     Indication: Product used for unknown indication
     Dosage: UNK
     Route: 065
  6. NITROGLYCERIN [Interacting]
     Active Substance: NITROGLYCERIN
     Indication: Product used for unknown indication
     Dosage: UNK
     Route: 065
  7. NITROGLYCERIN [Interacting]
     Active Substance: NITROGLYCERIN
     Indication: Product used for unknown indication
     Dosage: UNK
     Route: 065
  8. TACROLIMUS [Interacting]
     Active Substance: TACROLIMUS
     Indication: Prophylaxis against transplant rejection
     Dosage: 6 MILLIGRAM DAILY; 1.5 MILLIGRAM, BID
     Route: 048
     Dates: start: 20180130
  9. TACROLIMUS [Interacting]
     Active Substance: TACROLIMUS
     Indication: Renal transplant
     Dosage: 8 MILLIGRAM DAILY; 2 MILLIGRAM, BID
     Dates: start: 20180128
  10. TACROLIMUS [Interacting]
     Active Substance: TACROLIMUS
     Dosage: 6 MILLIGRAM DAILY; 1.5 MILLIGRAM,
     Dates: start: 20100127, end: 20180130
  11. TACROLIMUS [Interacting]
     Active Substance: TACROLIMUS
     Dosage: 60 MILLIGRAM DAILY; 15 MILLIGRAM,
     Route: 048
  12. TACROLIMUS [Interacting]
     Active Substance: TACROLIMUS
     Dosage: 4 MILLIGRAM DAILY; 4 MILLIGRAM
  13. TACROLIMUS [Interacting]
     Active Substance: TACROLIMUS
     Dosage: 8 MILLIGRAM DAILY; 2 MILLIGRAM
     Dates: start: 20180128
  14. HYDROCORTISONE [Interacting]
     Active Substance: HYDROCORTISONE
     Indication: Product used for unknown indication
     Dosage: 1350 MILLIGRAM DAILY; 150 MILLIGRAM,
     Route: 042
     Dates: start: 20180201
  15. HYDROCORTISONE [Interacting]
     Active Substance: HYDROCORTISONE
     Dosage: 450 MILLIGRAM DAILY; 50 MILLIGRAM
     Route: 042
     Dates: start: 20180201
  16. HYDROCORTISONE [Interacting]
     Active Substance: HYDROCORTISONE
     Dosage: 150 MILLIGRAM DAILY; 150 MILLIGRAM
     Route: 042
     Dates: start: 20180201
  17. OMEPRAZOLE [Suspect]
     Active Substance: OMEPRAZOLE
     Indication: Duodenal ulcer
     Route: 065
  18. FUROSEMIDE [Concomitant]
     Active Substance: FUROSEMIDE
     Indication: Product used for unknown indication
     Route: 048
  19. CHOLECALCIFEROL [Concomitant]
     Active Substance: CHOLECALCIFEROL
     Indication: Product used for unknown indication
     Route: 048
  20. GLICLAZIDE [Concomitant]
     Active Substance: GLICLAZIDE
     Indication: Product used for unknown indication
     Dosage: MORNING
     Route: 048
  21. PREDNISOLONE [Concomitant]
     Active Substance: PREDNISOLONE
     Indication: Product used for unknown indication
     Route: 048
  22. EPLERENONE [Concomitant]
     Active Substance: EPLERENONE
     Indication: Product used for unknown indication
     Dosage: MORNING
     Route: 048
     Dates: end: 20180130
  23. FUROSEMIDE [Concomitant]
     Active Substance: FUROSEMIDE
     Indication: Product used for unknown indication
     Dosage: UNK 12 PM
     Route: 048
  24. FUROSEMIDE [Concomitant]
     Active Substance: FUROSEMIDE
     Dosage: 80 MG, MONTHLY
     Route: 048
  25. SENNA [Concomitant]
     Active Substance: SENNA LEAF\SENNOSIDES\SENNOSIDES A AND B
     Indication: Product used for unknown indication
     Dosage: UNK ON, SENNA /00142201/
     Route: 048
  26. OMEPRAZOLE [Concomitant]
     Active Substance: OMEPRAZOLE
     Indication: Product used for unknown indication
     Route: 048
  27. BETAHISTINE [Concomitant]
     Active Substance: BETAHISTINE
     Indication: Product used for unknown indication
     Route: 048
  28. ALFACALCIDOL [Concomitant]
     Active Substance: ALFACALCIDOL
     Indication: Product used for unknown indication
     Dosage: 500 NANOGRAM DAILY;
     Route: 048
  29. SENNOSIDES A+amp B [Concomitant]
  30. ALBUTEROL [Concomitant]
     Active Substance: ALBUTEROL
     Indication: Product used for unknown indication
     Dosage: UNK
  31. DOXYCYCLINE [Concomitant]
     Active Substance: DOXYCYCLINE
     Indication: Product used for unknown indication
     Dosage: UNK
     Route: 065
  32. ALLOPURINOL [Concomitant]
     Active Substance: ALLOPURINOL
     Indication: Product used for unknown indication
     Dosage: ALLOPURINOL /00003302/, 100 MILLIGRAM, UNIT DOSE: 100 MG
  33. NITROGLYCERIN [Concomitant]
     Active Substance: NITROGLYCERIN
     Indication: Product used for unknown indication
  34. DEXTROSE [Concomitant]
     Active Substance: DEXTROSE
     Indication: Product used for unknown indication
     Dosage: UNK
     Route: 065
     Dates: start: 20180130
  35. GLUCOGEL [Concomitant]
     Indication: Product used for unknown indication
     Dosage: UNK
     Dates: start: 20180130
  36. GLUCAGON [Concomitant]
     Active Substance: GLUCAGON
     Indication: Product used for unknown indication
     Dosage: UNK
     Route: 030
     Dates: start: 20180130

REACTIONS (34)
  - Drug interaction [Fatal]
  - Immunosuppressant drug level increased [Fatal]
  - Acute kidney injury [Fatal]
  - Sepsis [Unknown]
  - Oesophageal perforation [Fatal]
  - Productive cough [Fatal]
  - Rales [Fatal]
  - Pyrexia [Fatal]
  - Lower respiratory tract infection [Unknown]
  - Cough [Fatal]
  - Pneumonia [Fatal]
  - Rash [Fatal]
  - Transplant failure [Fatal]
  - Cardiomegaly [Fatal]
  - Superinfection [Fatal]
  - Soft tissue mass [Fatal]
  - Multimorbidity [Fatal]
  - Lung consolidation [Fatal]
  - Labelled drug-drug interaction medication error [Fatal]
  - Renal impairment [Fatal]
  - Drug level increased [Fatal]
  - Toxicity to various agents [Fatal]
  - Dyspnoea [Fatal]
  - Swelling [Fatal]
  - Hypoglycaemia [Fatal]
  - Pleural effusion [Fatal]
  - Inflammatory marker increased [Fatal]
  - Ascites [Fatal]
  - Oesophageal carcinoma [Fatal]
  - Dysphagia [Fatal]
  - Malaise [Fatal]
  - Myocardial ischaemia [Fatal]
  - Cardiac failure congestive [Fatal]
  - Haemoptysis [Fatal]

NARRATIVE: CASE EVENT DATE: 20180118
